FAERS Safety Report 23296877 (Version 1)
Quarter: 2023Q4

REPORT INFORMATION
  Report Type: Report from Study
  Country: FR (occurrence: FR)
  Receive Date: 20231214
  Receipt Date: 20231214
  Transmission Date: 20240109
  Serious: Yes (Hospitalization)
  Sender: FDA-Public Use
  Company Number: FR-SA-SAC20231211000951

PATIENT
  Age: 61 Year
  Sex: Male
  Weight: 80 kg

DRUGS (7)
  1. ISATUXIMAB [Suspect]
     Active Substance: ISATUXIMAB
     Indication: Plasma cell myeloma refractory
     Dosage: 800 MG
     Route: 065
     Dates: start: 20220712, end: 20220712
  2. ISATUXIMAB [Suspect]
     Active Substance: ISATUXIMAB
     Dosage: 802 MG
     Route: 065
     Dates: start: 20231109, end: 20231109
  3. POMALIDOMIDE [Suspect]
     Active Substance: POMALIDOMIDE
     Indication: Plasma cell myeloma
     Dosage: 4 MG
     Route: 065
     Dates: start: 20220712, end: 20220712
  4. POMALIDOMIDE [Suspect]
     Active Substance: POMALIDOMIDE
     Dosage: 4 MG
     Route: 065
     Dates: start: 20231101, end: 20231101
  5. CARFILZOMIB [Suspect]
     Active Substance: CARFILZOMIB
     Indication: Plasma cell myeloma
     Dosage: 110 MG
     Route: 065
     Dates: start: 20220712, end: 20220712
  6. CARFILZOMIB [Suspect]
     Active Substance: CARFILZOMIB
     Dosage: 111 MG
     Route: 065
     Dates: start: 20231116, end: 20231116
  7. DEXAMETHASONE [Suspect]
     Active Substance: DEXAMETHASONE
     Indication: Plasma cell myeloma
     Dosage: 40 MG
     Route: 048
     Dates: start: 20220712, end: 20220712

REACTIONS (1)
  - Device related infection [Not Recovered/Not Resolved]

NARRATIVE: CASE EVENT DATE: 20231123
